FAERS Safety Report 7519348-7 (Version None)
Quarter: 2011Q2

REPORT INFORMATION
  Report Type: 
  Country: None (occurrence: None)
  Receive Date: 20110602
  Receipt Date: 20110524
  Transmission Date: 20111010
  Serious: Yes (Hospitalization)
  Sender: FDA-Public Use
  Company Number: US-ASTRAZENECA-2011SE31653

PATIENT
  Sex: Female

DRUGS (14)
  1. LANTUS [Concomitant]
     Indication: DIABETES MELLITUS
  2. CYMBALTA [Suspect]
     Route: 065
  3. DICLOFENAC SODIUM [Concomitant]
  4. POTASSIUM CHLORIDE [Concomitant]
  5. ZOCOR [Concomitant]
     Indication: BLOOD CHOLESTEROL
  6. STOOL SOFTENER [Concomitant]
  7. LACTULOSE [Concomitant]
  8. PRILOSEC [Concomitant]
  9. LASIX [Concomitant]
     Indication: OEDEMA
  10. SEROQUEL [Suspect]
     Indication: BIPOLAR DISORDER
     Route: 048
  11. NOVALOG [Concomitant]
     Indication: DIABETES MELLITUS
  12. ZOLOFT [Concomitant]
  13. GABAPENTIN [Concomitant]
     Indication: NEUROPATHY PERIPHERAL
  14. TRAZODONE HCL [Concomitant]

REACTIONS (2)
  - HEPATOTOXICITY [None]
  - NEUROTOXICITY [None]
